FAERS Safety Report 8390550-8 (Version None)
Quarter: 2012Q2

REPORT INFORMATION
  Report Type: 
  Country: None (occurrence: None)
  Receive Date: 20120529
  Receipt Date: 20120517
  Transmission Date: 20120825
  Serious: Yes (Other)
  Sender: FDA-Public Use
  Company Number: US-JNJFOC-20120515466

PATIENT
  Sex: Female
  Weight: 81.19 kg

DRUGS (3)
  1. REMICADE [Suspect]
     Indication: CROHN'S DISEASE
     Route: 042
     Dates: start: 20070101, end: 20120303
  2. AZATHIOPRINE [Concomitant]
     Indication: CROHN'S DISEASE
     Route: 048
     Dates: start: 20070101
  3. PRILOSEC [Concomitant]
     Indication: DYSPEPSIA
     Route: 048
     Dates: start: 20070101

REACTIONS (2)
  - MALIGNANT MELANOMA [None]
  - HYPERKERATOSIS [None]
